FAERS Safety Report 7528192-6 (Version None)
Quarter: 2011Q2

REPORT INFORMATION
  Report Type: 
  Country: None (occurrence: None)
  Receive Date: 20110607
  Receipt Date: 20100616
  Transmission Date: 20111010
  Serious: Yes (Other)
  Sender: FDA-Public Use
  Company Number: US-ASTRAZENECA-2010SE27895

PATIENT
  Age: 58 Year
  Sex: Male

DRUGS (6)
  1. STEROIDS [Concomitant]
  2. LPV/R [Concomitant]
  3. OMEPRAZOLE [Suspect]
  4. 908 [Concomitant]
  5. LISINOPRIL [Concomitant]
  6. VIDEX [Concomitant]

REACTIONS (1)
  - TUBULOINTERSTITIAL NEPHRITIS [None]
